FAERS Safety Report 10072417 (Version 1)
Quarter: 2014Q2

REPORT INFORMATION
  Report Type: Report from Study
  Country: CA (occurrence: CA)
  Receive Date: 20140411
  Receipt Date: 20140411
  Transmission Date: 20141212
  Serious: Yes (Other)
  Sender: FDA-Public Use
  Company Number: CA-009507513-1404CAN003293

PATIENT
  Sex: Female

DRUGS (4)
  1. VICTRELIS [Suspect]
     Dosage: 800 MG, TID
     Route: 048
  2. PEGETRON [Suspect]
     Dosage: 180 MICROGRAM PER KILOGRAM, QW
     Route: 058
  3. PEGETRON [Suspect]
     Dosage: 100 MG, QD
     Route: 048
  4. EPREX [Suspect]
     Route: 058

REACTIONS (2)
  - Adverse drug reaction [Unknown]
  - Transfusion [Unknown]
